FAERS Safety Report 8859338 (Version 1)
Quarter: 2012Q4

REPORT INFORMATION
  Report Type: Spontaneous
  Country: NZ (occurrence: None)
  Receive Date: 20121022
  Receipt Date: 20121022
  Transmission Date: 20130627
  Serious: Yes (Hospitalization)
  Sender: FDA-Public Use
  Company Number: 2012AP003386

PATIENT
  Age: 15 Year
  Sex: Male

DRUGS (1)
  1. DICLOFENAC [Suspect]
     Indication: DRUG USE FOR UNKNOWN INDICATION

REACTIONS (2)
  - Tubulointerstitial nephritis [None]
  - Renal failure acute [None]
